FAERS Safety Report 8812826 (Version 1)
Quarter: 2012Q4

REPORT INFORMATION
  Report Type: 
  Country: US (occurrence: US)
  Receive Date: 20120927
  Receipt Date: 20120927
  Transmission Date: 20130627
  Serious: No
  Sender: FDA-Public Use
  Company Number: US-AMGEN-USASP2012039633

PATIENT
  Age: 67 Year
  Sex: Male

DRUGS (13)
  1. XGEVA [Suspect]
     Indication: PROSTATE CANCER METASTATIC
     Dosage: UNK UNK, qmo
     Dates: start: 201107
  2. TRAMADOL [Concomitant]
     Indication: MYALGIA
  3. TRAMADOL [Concomitant]
     Indication: BONE PAIN
  4. TRAMADOL [Concomitant]
     Indication: NEURALGIA
  5. NEURONTIN [Concomitant]
     Indication: MYALGIA
  6. NEURONTIN [Concomitant]
     Indication: BONE PAIN
  7. NEURONTIN [Concomitant]
     Indication: NEURALGIA
  8. CALCIUM [Concomitant]
  9. VITAMIN D [Concomitant]
  10. VITAMIN C [Concomitant]
  11. OMEGA 3 FISH OIL [Concomitant]
  12. GLUCOSAMINE [Concomitant]
  13. LISINOPRIL/HCTZ [Concomitant]

REACTIONS (4)
  - Myalgia [Not Recovered/Not Resolved]
  - Bone pain [Not Recovered/Not Resolved]
  - Neuralgia [Not Recovered/Not Resolved]
  - Rash papular [Not Recovered/Not Resolved]
